FAERS Safety Report 23257534 (Version 4)
Quarter: 2025Q1

REPORT INFORMATION
  Report Type: Spontaneous
  Country: US (occurrence: US)
  Receive Date: 20231204
  Receipt Date: 20250210
  Transmission Date: 20250408
  Serious: Yes (Other)
  Sender: PFIZER
  Company Number: US-PFIZER INC-PV202300190566

PATIENT
  Age: 65 Year
  Sex: Female
  Weight: 90.703 kg

DRUGS (4)
  1. XELJANZ [Suspect]
     Active Substance: TOFACITINIB CITRATE
  2. ASPIRIN [Concomitant]
     Active Substance: ASPIRIN
  3. GINKGO AL [Concomitant]
  4. CHLORAL HYDRATE [Concomitant]
     Active Substance: CHLORAL HYDRATE
     Indication: Seasonal allergy

REACTIONS (3)
  - Polyarthritis [Unknown]
  - Illness [Unknown]
  - Influenza [Unknown]
